FAERS Safety Report 24686440 (Version 1)
Quarter: 2024Q4

REPORT INFORMATION
  Report Type: Spontaneous
  Country: RS (occurrence: RS)
  Receive Date: 20241202
  Receipt Date: 20241202
  Transmission Date: 20250115
  Serious: Yes (Hospitalization, Other)
  Sender: MERCK
  Company Number: RS-009507513-2411SRB012216

PATIENT
  Age: 41 Year
  Sex: Male

DRUGS (4)
  1. KEYTRUDA [Suspect]
     Active Substance: PEMBROLIZUMAB
     Indication: Malignant melanoma
     Dosage: DOSING INTERVAL: 1 PER 3 WEEK
     Route: 042
     Dates: start: 20231009, end: 20240227
  2. RIVAROXABAN [Concomitant]
     Active Substance: RIVAROXABAN
     Indication: Pulmonary embolism
     Dosage: DOSING INTERVAL: 1 PER 1 DAY
     Route: 048
     Dates: start: 202310
  3. RAMIPRIL [Concomitant]
     Active Substance: RAMIPRIL
     Indication: Product used for unknown indication
     Dosage: DOSING INTERVAL: 1 PER 1 DAY
     Route: 048
  4. CONTROLOC [Concomitant]
     Active Substance: PANTOPRAZOLE SODIUM
     Dosage: DOSING INTERVAL: 1 PER 1 DAY
     Route: 048

REACTIONS (7)
  - Diarrhoea haemorrhagic [Recovering/Resolving]
  - Proctitis ulcerative [Recovering/Resolving]
  - Colitis ulcerative [Unknown]
  - Condition aggravated [Unknown]
  - Weight decreased [Unknown]
  - Culture stool [Unknown]
  - Vomiting [Unknown]

NARRATIVE: CASE EVENT DATE: 20240201
